FAERS Safety Report 15316674 (Version 3)
Quarter: 2018Q4

REPORT INFORMATION
  Report Type: Spontaneous
  Country: US (occurrence: US)
  Receive Date: 20180824
  Receipt Date: 20181010
  Transmission Date: 20190204
  Serious: No
  Sender: FDA-Public Use
  Company Number: US-ASTRAZENECA-2018SF06844

PATIENT
  Sex: Female

DRUGS (1)
  1. SYMBICORT [Suspect]
     Active Substance: BUDESONIDE\FORMOTEROL FUMARATE DIHYDRATE
     Indication: ASTHMA
     Dosage: 80 MCG/4.5 MCG, TWO TIMES A DAY
     Route: 055

REACTIONS (3)
  - Psychomotor hyperactivity [Unknown]
  - Tremor [Unknown]
  - Product formulation issue [Unknown]
